FAERS Safety Report 16686570 (Version 1)
Quarter: 2019Q3

REPORT INFORMATION
  Report Type: Spontaneous
  Country: FR (occurrence: FR)
  Receive Date: 20190809
  Receipt Date: 20190809
  Transmission Date: 20191004
  Serious: Yes (Hospitalization)
  Sender: FDA-Public Use
  Company Number: FR-TEVA-2019-FR-1089398

PATIENT
  Age: 80 Year
  Sex: Female
  Weight: 69 kg

DRUGS (5)
  1. TEMESTA [Concomitant]
  2. MOPRAL [Concomitant]
     Active Substance: OMEPRAZOLE
  3. AMIODARONE [Suspect]
     Active Substance: AMIODARONE
     Indication: ATRIAL FIBRILLATION
     Dosage: 200 MG
     Route: 048
     Dates: start: 20160606, end: 20160629
  4. KARDEGIC [Concomitant]
     Active Substance: ASPIRIN DL-LYSINE
  5. LIPANOR [Concomitant]
     Active Substance: CIPROFIBRATE

REACTIONS (2)
  - Hyperthyroidism [Recovered/Resolved]
  - Cardiac failure [Recovered/Resolved]

NARRATIVE: CASE EVENT DATE: 20160628
